FAERS Safety Report 25285801 (Version 1)
Quarter: 2025Q2

REPORT INFORMATION
  Report Type: Spontaneous
  Country: US (occurrence: US)
  Receive Date: 20250509
  Receipt Date: 20250509
  Transmission Date: 20250716
  Serious: Yes (Other)
  Sender: ROCHE
  Company Number: US-ROCHE-10000277208

PATIENT

DRUGS (7)
  1. TNKASE [Suspect]
     Active Substance: TENECTEPLASE
     Indication: Ischaemic stroke
     Route: 065
  2. TNKASE [Suspect]
     Active Substance: TENECTEPLASE
     Route: 065
  3. TNKASE [Suspect]
     Active Substance: TENECTEPLASE
     Route: 065
  4. TNKASE [Suspect]
     Active Substance: TENECTEPLASE
     Route: 065
  5. TNKASE [Suspect]
     Active Substance: TENECTEPLASE
     Route: 065
  6. TNKASE [Suspect]
     Active Substance: TENECTEPLASE
     Route: 065
  7. TNKASE [Suspect]
     Active Substance: TENECTEPLASE
     Route: 065

REACTIONS (1)
  - Haemorrhagic transformation stroke [Unknown]

NARRATIVE: CASE EVENT DATE: 20241101
